FAERS Safety Report 15791140 (Version 1)
Quarter: 2019Q1

REPORT INFORMATION
  Report Type: Spontaneous
  Country: US (occurrence: US)
  Receive Date: 20190104
  Receipt Date: 20190104
  Transmission Date: 20190417
  Serious: Yes (Other)
  Sender: FDA-Public Use
  Company Number: US-PFIZER INC-2018507892

PATIENT
  Age: 61 Year
  Sex: Female
  Weight: 78.2 kg

DRUGS (6)
  1. LYRICA [Suspect]
     Active Substance: PREGABALIN
     Indication: AUTOIMMUNE DISORDER
     Dosage: 375 MG, DAILY (150 MG IN THE MORNING, 75MG MIDDAY, AND 150 MG IN THE EVENING)
  2. LYRICA [Suspect]
     Active Substance: PREGABALIN
     Indication: MENINGITIS
  3. LYRICA [Suspect]
     Active Substance: PREGABALIN
     Indication: ARACHNOIDITIS
     Dosage: 150 MG, 3X/DAY (MORNING AFTERNOON AND EVENING)
     Route: 048
     Dates: start: 20181206
  4. CEVIMELINE. [Concomitant]
     Active Substance: CEVIMELINE
     Indication: APTYALISM
     Dosage: 30 MG, 2X/DAY
  5. LYRICA [Suspect]
     Active Substance: PREGABALIN
     Indication: PAIN
     Dosage: 150 MG, 2X/DAY
  6. LYRICA [Suspect]
     Active Substance: PREGABALIN
     Indication: NEURALGIA
     Dosage: 75 MG, 3X/DAY
     Route: 048
     Dates: start: 20181201

REACTIONS (4)
  - Condition aggravated [Unknown]
  - Feeling abnormal [Unknown]
  - Autoimmune disorder [Unknown]
  - Breakthrough pain [Unknown]

NARRATIVE: CASE EVENT DATE: 201812
